FAERS Safety Report 8004677-3 (Version None)
Quarter: 2011Q4

REPORT INFORMATION
  Report Type: 
  Country: None (occurrence: None)
  Receive Date: 20111223
  Receipt Date: 20111215
  Transmission Date: 20120403
  Serious: Yes (Hospitalization)
  Sender: FDA-Public Use
  Company Number: US-JNJFOC-20111207324

PATIENT
  Sex: Male
  Weight: 108.3 kg

DRUGS (3)
  1. INFLIXIMAB, RECOMBINANT [Suspect]
     Indication: INFLAMMATION
     Dosage: REPORTED THE MOST RECENT INFUSION WAS ON 03-JAN-2011
     Route: 042
     Dates: start: 20101202
  2. METHOTREXATE [Concomitant]
  3. INFLIXIMAB, RECOMBINANT [Suspect]
     Route: 042
     Dates: start: 20110103

REACTIONS (1)
  - ILEOCOLECTOMY [None]
